FAERS Safety Report 7285413-5 (Version None)
Quarter: 2011Q1

REPORT INFORMATION
  Report Type: 
  Country: None (occurrence: None)
  Receive Date: 20110210
  Receipt Date: 20110204
  Transmission Date: 20110831
  Serious: Yes (Hospitalization)
  Sender: FDA-Public Use
  Company Number: US-ABBOTT-11P-163-0703000-00

PATIENT
  Sex: Female
  Weight: 78.996 kg

DRUGS (10)
  1. SULFASALAZINE [Concomitant]
     Indication: RHEUMATOID ARTHRITIS
     Route: 048
     Dates: end: 20110120
  2. PREDNISONE [Concomitant]
     Indication: PRODUCT USED FOR UNKNOWN INDICATION
     Route: 048
     Dates: start: 20000101
  3. DIOVAN HCT [Concomitant]
     Dosage: 160/12.5 DAILY
     Route: 048
     Dates: start: 20100401
  4. HUMIRA [Suspect]
     Indication: RHEUMATOID ARTHRITIS
     Route: 058
     Dates: start: 20100101
  5. FOLIC ACID [Concomitant]
     Indication: VITAMIN SUPPLEMENTATION
     Route: 048
  6. SULFASALAZINE [Concomitant]
     Route: 048
     Dates: start: 20110120
  7. DIAZEPAM [Concomitant]
     Indication: ANXIOLYTIC THERAPY
     Route: 048
  8. CRESTOR [Concomitant]
     Indication: BLOOD CHOLESTEROL INCREASED
     Route: 048
  9. DIOVAN HCT [Concomitant]
     Indication: HYPERTENSION
     Dosage: 80/12.5 DAILY
     Route: 048
     Dates: end: 20100401
  10. LABETALOL [Suspect]
     Indication: BLOOD PRESSURE INCREASED
     Route: 048
     Dates: start: 20100401

REACTIONS (6)
  - HEADACHE [None]
  - BLOOD PRESSURE INCREASED [None]
  - DRUG EFFECT DECREASED [None]
  - DIZZINESS [None]
  - OROPHARYNGEAL PAIN [None]
  - NAUSEA [None]
